FAERS Safety Report 7661595-8 (Version None)
Quarter: 2011Q3

REPORT INFORMATION
  Report Type: 
  Country: None (occurrence: None)
  Receive Date: 20110805
  Receipt Date: 20101024
  Transmission Date: 20111222
  Serious: No
  Sender: FDA-Public Use
  Company Number: US-ABBOTT-10P-163-0680886-00

PATIENT
  Sex: Male
  Weight: 93.07 kg

DRUGS (2)
  1. NIASPAN [Suspect]
     Indication: HYPERLIPIDAEMIA
     Dates: start: 20101024, end: 20101024
  2. WELCHOL [Concomitant]
     Indication: PRODUCT USED FOR UNKNOWN INDICATION
     Dosage: AT 7 AM

REACTIONS (5)
  - SKIN BURNING SENSATION [None]
  - PRURITUS [None]
  - ERYTHEMA [None]
  - FLUSHING [None]
  - INCORRECT DOSE ADMINISTERED [None]
